FAERS Safety Report 4543844-8 (Version None)
Quarter: 2005Q1

REPORT INFORMATION
  Report Type: 
  Country: None (occurrence: None)
  Receive Date: 20050104
  Receipt Date: 20041008
  Transmission Date: 20050727
  Serious: Yes (Hospitalization, Other)
  Sender: FDA-Public Use
  Company Number: PHRM2004FR03065

PATIENT
  Age: 37 Year
  Sex: Male
  Weight: 59 kg

DRUGS (3)
  1. LEPONEX [Suspect]
     Indication: CHILDHOOD PSYCHOSIS
     Dosage: UNK, UNK
     Route: 048
     Dates: start: 19950101, end: 20040929
  2. LYSANXIA [Suspect]
     Dosage: 50 MG DAILY
     Route: 048
     Dates: start: 19950101
  3. OFLOCET [Suspect]
     Route: 048

REACTIONS (36)
  - ASCITES [None]
  - BLADDER DISORDER [None]
  - BLADDER DIVERTICULUM [None]
  - BLADDER STENOSIS [None]
  - BLOOD ALKALINE PHOSPHATASE INCREASED [None]
  - BLOOD LACTATE DEHYDROGENASE INCREASED [None]
  - C-REACTIVE PROTEIN INCREASED [None]
  - CALCULUS URINARY [None]
  - CARDIOMEGALY [None]
  - CHEST X-RAY ABNORMAL [None]
  - ENURESIS [None]
  - GAMMA-GLUTAMYLTRANSFERASE INCREASED [None]
  - GENERAL PHYSICAL HEALTH DETERIORATION [None]
  - HAEMOGLOBIN DECREASED [None]
  - HEPATOSPLENOMEGALY [None]
  - INFLAMMATION [None]
  - LYMPHOPENIA [None]
  - MALAISE [None]
  - MEDIASTINAL DISORDER [None]
  - NITRITE URINE PRESENT [None]
  - NORMOCHROMIC NORMOCYTIC ANAEMIA [None]
  - OEDEMA PERIPHERAL [None]
  - PERICARDIAL RUB [None]
  - PERICARDITIS [None]
  - PLEURAL EFFUSION [None]
  - POLLAKIURIA [None]
  - PROSTATE INFECTION [None]
  - PROSTATIC DISORDER [None]
  - PROTEUS INFECTION [None]
  - PULMONARY EMBOLISM [None]
  - PULMONARY HYPERTENSION [None]
  - RED BLOOD CELL SEDIMENTATION RATE INCREASED [None]
  - SURGERY [None]
  - THROMBOCYTOPENIA [None]
  - URINARY RETENTION [None]
  - WEIGHT DECREASED [None]
